FAERS Safety Report 24326478 (Version 1)
Quarter: 2024Q3

REPORT INFORMATION
  Report Type: Spontaneous
  Country: FR (occurrence: FR)
  Receive Date: 20240917
  Receipt Date: 20240917
  Transmission Date: 20241017
  Serious: Yes (Other)
  Sender: AUROBINDO
  Company Number: FR-AUROBINDO-AUR-APL-2018-002360

PATIENT
  Age: 46 Year
  Sex: Female

DRUGS (17)
  1. DOCETAXEL [Suspect]
     Active Substance: DOCETAXEL\DOCETAXEL ANHYDROUS
     Indication: Intraductal proliferative breast lesion
     Dosage: UNK
     Route: 065
     Dates: start: 201005, end: 201009
  2. DOCETAXEL [Suspect]
     Active Substance: DOCETAXEL\DOCETAXEL ANHYDROUS
     Indication: Invasive ductal breast carcinoma
     Dosage: UNK UNK, CYCLIC (3 CYCLES)
     Route: 065
     Dates: start: 201005, end: 201009
  3. DOCETAXEL [Suspect]
     Active Substance: DOCETAXEL\DOCETAXEL ANHYDROUS
     Dosage: (3 COURSES), UNK ()
     Route: 065
  4. DOCETAXEL [Suspect]
     Active Substance: DOCETAXEL\DOCETAXEL ANHYDROUS
     Dosage: UNK UNK, CYCLIC (3 CYCLES)
     Route: 065
     Dates: start: 201005, end: 201009
  5. DOCETAXEL [Suspect]
     Active Substance: DOCETAXEL\DOCETAXEL ANHYDROUS
     Dosage: UNK
     Route: 065
  6. EPIRUBICIN [Suspect]
     Active Substance: EPIRUBICIN
     Indication: Intraductal proliferative breast lesion
     Route: 065
  7. EPIRUBICIN [Suspect]
     Active Substance: EPIRUBICIN
     Indication: Invasive ductal breast carcinoma
     Dosage: UNK UNK, CYCLIC (3 CYCLES)
     Route: 065
  8. EPIRUBICIN [Suspect]
     Active Substance: EPIRUBICIN
     Dosage: (3 COURSES), UNK ()
     Route: 065
  9. CYCLOPHOSPHAMIDE [Suspect]
     Active Substance: CYCLOPHOSPHAMIDE
     Indication: Product used for unknown indication
     Dosage: UNK
     Route: 065
  10. CYCLOPHOSPHAMIDE [Suspect]
     Active Substance: CYCLOPHOSPHAMIDE
     Indication: Invasive ductal breast carcinoma
     Dosage: UNK UNK, CYCLIC (3 CYCLES)
     Route: 065
  11. CYCLOPHOSPHAMIDE [Suspect]
     Active Substance: CYCLOPHOSPHAMIDE
     Indication: Intraductal proliferative breast lesion
     Dosage: (3 COURSES), UNK ()
     Route: 065
  12. EPIRUBICIN HYDROCHLORIDE [Suspect]
     Active Substance: EPIRUBICIN HYDROCHLORIDE
     Indication: Invasive ductal breast carcinoma
     Dosage: UNK UNK, CYCLIC (3 CYCLES)
     Route: 065
  13. FLUOROURACIL [Suspect]
     Active Substance: FLUOROURACIL
     Indication: Product used for unknown indication
     Dosage: UNK
     Route: 065
  14. FLUOROURACIL [Suspect]
     Active Substance: FLUOROURACIL
     Indication: Invasive ductal breast carcinoma
     Dosage: 3 CYCLES, CYCLICAL
     Route: 065
  15. FLUOROURACIL [Suspect]
     Active Substance: FLUOROURACIL
     Indication: Intraductal proliferative breast lesion
     Dosage: (3 COURSES), UNK
     Route: 065
  16. FLUOROURACIL [Suspect]
     Active Substance: FLUOROURACIL
     Dosage: (3 COURSES), CYCLICAL
     Route: 065
  17. FLUOROURACIL [Suspect]
     Active Substance: FLUOROURACIL
     Indication: Invasive ductal breast carcinoma
     Dosage: UNK UNK, CYCLIC (3 CYCLES)
     Route: 065

REACTIONS (8)
  - Sarcoidosis [Recovering/Resolving]
  - Dyspnoea [Recovering/Resolving]
  - General physical health deterioration [Recovering/Resolving]
  - Fatigue [Unknown]
  - Weight decreased [Unknown]
  - Arthralgia [Unknown]
  - Decreased appetite [Unknown]
  - Asthenia [Unknown]
